FAERS Safety Report 25522008 (Version 1)
Quarter: 2025Q3

REPORT INFORMATION
  Report Type: Spontaneous
  Country: US (occurrence: US)
  Receive Date: 20250706
  Receipt Date: 20250706
  Transmission Date: 20251021
  Serious: No
  Sender: ELI LILLY AND COMPANY
  Company Number: US-ELI_LILLY_AND_COMPANY-US202507000561

PATIENT
  Age: 48 Year
  Sex: Female

DRUGS (16)
  1. ZEPBOUND [Suspect]
     Active Substance: TIRZEPATIDE
     Indication: Weight control
     Route: 065
  2. ZEPBOUND [Suspect]
     Active Substance: TIRZEPATIDE
     Indication: Weight control
     Route: 065
  3. ZEPBOUND [Suspect]
     Active Substance: TIRZEPATIDE
     Indication: Weight control
     Route: 065
  4. ZEPBOUND [Suspect]
     Active Substance: TIRZEPATIDE
     Indication: Weight control
     Route: 065
  5. ZEPBOUND [Suspect]
     Active Substance: TIRZEPATIDE
     Indication: Type 2 diabetes mellitus
  6. ZEPBOUND [Suspect]
     Active Substance: TIRZEPATIDE
     Indication: Type 2 diabetes mellitus
  7. ZEPBOUND [Suspect]
     Active Substance: TIRZEPATIDE
     Indication: Type 2 diabetes mellitus
  8. ZEPBOUND [Suspect]
     Active Substance: TIRZEPATIDE
     Indication: Type 2 diabetes mellitus
  9. ZEPBOUND [Suspect]
     Active Substance: TIRZEPATIDE
     Indication: Weight control
     Route: 065
  10. ZEPBOUND [Suspect]
     Active Substance: TIRZEPATIDE
     Indication: Weight control
     Route: 065
  11. ZEPBOUND [Suspect]
     Active Substance: TIRZEPATIDE
     Indication: Weight control
     Route: 065
  12. ZEPBOUND [Suspect]
     Active Substance: TIRZEPATIDE
     Indication: Weight control
     Route: 065
  13. ZEPBOUND [Suspect]
     Active Substance: TIRZEPATIDE
     Indication: Type 2 diabetes mellitus
  14. ZEPBOUND [Suspect]
     Active Substance: TIRZEPATIDE
     Indication: Type 2 diabetes mellitus
  15. ZEPBOUND [Suspect]
     Active Substance: TIRZEPATIDE
     Indication: Type 2 diabetes mellitus
  16. ZEPBOUND [Suspect]
     Active Substance: TIRZEPATIDE
     Indication: Type 2 diabetes mellitus

REACTIONS (3)
  - Wrong technique in device usage process [Unknown]
  - Product dose omission issue [Unknown]
  - Nausea [Unknown]
